FAERS Safety Report 10967871 (Version 1)
Quarter: 2015Q1

REPORT INFORMATION
  Report Type: Spontaneous
  Country: MX (occurrence: MX)
  Receive Date: 20150330
  Receipt Date: 20150330
  Transmission Date: 20150721
  Serious: Yes (Other)
  Sender: FDA-Public Use
  Company Number: MX-GLAXOSMITHKLINE-MX2015GSK041045

PATIENT
  Age: 68 Year
  Sex: Female
  Weight: 72 kg

DRUGS (2)
  1. COMBIVENT [Concomitant]
     Active Substance: ALBUTEROL SULFATE\IPRATROPIUM BROMIDE
     Indication: CHRONIC OBSTRUCTIVE PULMONARY DISEASE
     Dosage: UNK
     Dates: start: 20150210, end: 20150309
  2. RELVARE [Suspect]
     Active Substance: FLUTICASONE FUROATE\VILANTEROL TRIFENATATE
     Indication: CHRONIC OBSTRUCTIVE PULMONARY DISEASE
     Dosage: UNK
     Dates: start: 20150210, end: 20150309

REACTIONS (3)
  - Actinic keratosis [Not Recovered/Not Resolved]
  - Pruritus generalised [Recovered/Resolved]
  - Urticaria [Recovering/Resolving]
